FAERS Safety Report 14204904 (Version 2)
Quarter: 2018Q1

REPORT INFORMATION
  Report Type: Spontaneous
  Country: IT (occurrence: IT)
  Receive Date: 20171120
  Receipt Date: 20180130
  Transmission Date: 20180508
  Serious: Yes (Other)
  Sender: FDA-Public Use
  Company Number: IT-JNJFOC-20171115749

PATIENT
  Age: 47 Year
  Sex: Male

DRUGS (4)
  1. DOXORUBICIN [Suspect]
     Active Substance: DOXORUBICIN
     Indication: NERVOUS SYSTEM NEOPLASM
     Route: 042
     Dates: start: 20171103, end: 20171103
  2. IFOSFAMIDE. [Suspect]
     Active Substance: IFOSFAMIDE
     Indication: NERVOUS SYSTEM NEOPLASM
     Route: 042
     Dates: start: 20171103, end: 20171103
  3. IFOSFAMIDE. [Suspect]
     Active Substance: IFOSFAMIDE
     Indication: NERVOUS SYSTEM NEOPLASM
     Route: 042
  4. DOXORUBICIN [Suspect]
     Active Substance: DOXORUBICIN
     Indication: NERVOUS SYSTEM NEOPLASM
     Route: 042

REACTIONS (4)
  - Off label use [Unknown]
  - Lymphopenia [Unknown]
  - Anaemia [Unknown]
  - Product use in unapproved indication [Unknown]

NARRATIVE: CASE EVENT DATE: 20171103
